FAERS Safety Report 21550443 (Version 3)
Quarter: 2023Q1

REPORT INFORMATION
  Report Type: Report from Study
  Country: US (occurrence: US)
  Receive Date: 20221103
  Receipt Date: 20230221
  Transmission Date: 20230418
  Serious: Yes (Other)
  Sender: FDA-Public Use
  Company Number: US-002147023-NVSC2022US246971

PATIENT
  Age: 22 Year
  Sex: Female

DRUGS (2)
  1. VIJOICE [Suspect]
     Active Substance: ALPELISIB
     Indication: Product used for unknown indication
     Dosage: 200 MG, QD
     Route: 048
     Dates: start: 202204
  2. VIJOICE [Suspect]
     Active Substance: ALPELISIB
     Dosage: 150 MG, QD
     Route: 048

REACTIONS (4)
  - Haemorrhage [Recovered/Resolved]
  - Vascular malformation [Unknown]
  - Alopecia [Not Recovered/Not Resolved]
  - Diarrhoea [Unknown]

NARRATIVE: CASE EVENT DATE: 20220401
